FAERS Safety Report 14359375 (Version 1)
Quarter: 2018Q1

REPORT INFORMATION
  Report Type: Spontaneous
  Country: US (occurrence: US)
  Receive Date: 20180105
  Receipt Date: 20180105
  Transmission Date: 20180509
  Serious: No
  Sender: FDA-Public Use
  Company Number: US-SA-2017SA260549

PATIENT
  Age: 7 Year
  Sex: Male

DRUGS (1)
  1. ZANTAC [Suspect]
     Active Substance: RANITIDINE HYDROCHLORIDE
     Dosage: 1 TO 2 TABLETS
     Route: 048
     Dates: start: 20171218

REACTIONS (1)
  - Accidental exposure to product by child [Unknown]
